FAERS Safety Report 23884096 (Version 1)
Quarter: 2024Q2

REPORT INFORMATION
  Report Type: Spontaneous
  Country: US (occurrence: US)
  Receive Date: 20240522
  Receipt Date: 20240522
  Transmission Date: 20240716
  Serious: No
  Sender: FDA-Public Use
  Company Number: US-002147023-NVSC2024US107059

PATIENT

DRUGS (1)
  1. KISQALI [Suspect]
     Active Substance: RIBOCICLIB
     Indication: Product used for unknown indication
     Dosage: UNK (600MG, 3 PILLS, EACH PILL 200MG DAY)
     Route: 065

REACTIONS (5)
  - Drug intolerance [Unknown]
  - Burning sensation [Unknown]
  - Urticaria [Unknown]
  - Rash [Unknown]
  - Cough [Unknown]
